FAERS Safety Report 6399591-3 (Version None)
Quarter: 2009Q4

REPORT INFORMATION
  Report Type: 
  Country: None (occurrence: None)
  Receive Date: 20091014
  Receipt Date: 20091007
  Transmission Date: 20100525
  Serious: No
  Sender: FDA-Public Use
  Company Number: US-JNJFOC-20091002914

PATIENT
  Sex: Female

DRUGS (1)
  1. DURAGESIC-100 [Suspect]
     Indication: DRUG USE FOR UNKNOWN INDICATION
     Dosage: 2 PATCHES OF 75 UG/HR
     Route: 062

REACTIONS (2)
  - APPLICATION SITE ULCER [None]
  - INAPPROPRIATE SCHEDULE OF DRUG ADMINISTRATION [None]
